FAERS Safety Report 9466221 (Version 1)
Quarter: 2013Q3

REPORT INFORMATION
  Report Type: Spontaneous
  Country: US (occurrence: US)
  Receive Date: 20130820
  Receipt Date: 20130820
  Transmission Date: 20140515
  Serious: Yes (Other)
  Sender: FDA-Public Use
  Company Number: US-PFIZER INC-2013237421

PATIENT
  Age: 50 Year
  Sex: Female
  Weight: 122 kg

DRUGS (1)
  1. LEVOXYL [Suspect]
     Indication: BASEDOW^S DISEASE
     Dosage: 125 UG, 1X/DAY
     Route: 048
     Dates: start: 1998

REACTIONS (1)
  - Myocardial infarction [Unknown]
